FAERS Safety Report 14169415 (Version 1)
Quarter: 2017Q4

REPORT INFORMATION
  Report Type: Spontaneous
  Country: US (occurrence: US)
  Receive Date: 20171107
  Receipt Date: 20171107
  Transmission Date: 20180321
  Serious: No
  Sender: FDA-Public Use
  Company Number: US-BIOGEN-2017BI00480857

PATIENT
  Sex: Male

DRUGS (1)
  1. TECFIDERA [Suspect]
     Active Substance: DIMETHYL FUMARATE
     Indication: PRODUCT USED FOR UNKNOWN INDICATION
     Route: 065

REACTIONS (7)
  - Muscular weakness [Unknown]
  - Drug intolerance [Unknown]
  - Pain [Unknown]
  - Lymphocyte count decreased [Unknown]
  - Feeling abnormal [Unknown]
  - Balance disorder [Unknown]
  - Relapsing-remitting multiple sclerosis [Unknown]
